FAERS Safety Report 7121007-X (Version None)
Quarter: 2010Q4

REPORT INFORMATION
  Report Type: 
  Country: None (occurrence: None)
  Receive Date: 20101124
  Receipt Date: 20100421
  Transmission Date: 20110411
  Serious: Yes (Other)
  Sender: FDA-Public Use
  Company Number: US-PFIZER INC-2010030564

PATIENT
  Sex: Male
  Weight: 79.4 kg

DRUGS (7)
  1. TIKOSYN [Suspect]
     Indication: ATRIAL FIBRILLATION
     Dosage: 500 UG, 2X/DAY
     Route: 048
     Dates: start: 20100212, end: 20100228
  2. TIKOSYN [Suspect]
     Dosage: 250 UG, 2X/DAY
     Route: 048
     Dates: start: 20100301
  3. PREVACID [Concomitant]
     Indication: GASTROOESOPHAGEAL REFLUX DISEASE
     Dosage: UNK
  4. LIPITOR [Concomitant]
     Indication: BLOOD CHOLESTEROL INCREASED
     Dosage: UNK
  5. AMBIEN [Concomitant]
     Dosage: UNK
  6. CARAFATE [Concomitant]
     Dosage: 1 MG, 3X/DAY
  7. COUMADIN [Concomitant]
     Dosage: UNK %, 3X/DAY

REACTIONS (3)
  - CHEST PAIN [None]
  - COUGH [None]
  - DYSPNOEA [None]
